FAERS Safety Report 8596171-6 (Version None)
Quarter: 2012Q3

REPORT INFORMATION
  Report Type: 
  Country: None (occurrence: None)
  Receive Date: 20120815
  Receipt Date: 20120808
  Transmission Date: 20120928
  Serious: Yes (Hospitalization, Congenital Anomaly)
  Sender: FDA-Public Use
  Company Number: US-GLAXOSMITHKLINE-A0979177A

PATIENT
  Sex: Male

DRUGS (1)
  1. PAXIL [Suspect]
     Indication: DEPRESSION
     Dosage: 20MG PER DAY
     Route: 064

REACTIONS (7)
  - NEURAL TUBE DEFECT [None]
  - MENINGOCELE [None]
  - NEUROGENIC BLADDER [None]
  - SPINA BIFIDA [None]
  - FOETAL EXPOSURE DURING PREGNANCY [None]
  - NEUROGENIC BOWEL [None]
  - HYDROCEPHALUS [None]
